FAERS Safety Report 12878447 (Version 3)
Quarter: 2016Q4

REPORT INFORMATION
  Report Type: Spontaneous
  Country: US (occurrence: US)
  Receive Date: 20161024
  Receipt Date: 20161219
  Transmission Date: 20170207
  Serious: No
  Sender: FDA-Public Use
  Company Number: US-BAYER-2016-199279

PATIENT
  Age: 34 Year
  Sex: Female
  Weight: 63 kg

DRUGS (1)
  1. FINACEA [Suspect]
     Active Substance: AZELAIC ACID

REACTIONS (4)
  - Product container issue [Not Recovered/Not Resolved]
  - Chemical burn of skin [Not Recovered/Not Resolved]
  - Economic problem [None]
  - Product container issue [None]

NARRATIVE: CASE EVENT DATE: 201603
